FAERS Safety Report 25736954 (Version 2)
Quarter: 2025Q3

REPORT INFORMATION
  Report Type: Spontaneous
  Country: EU (occurrence: EU)
  Receive Date: 20250828
  Receipt Date: 20250904
  Transmission Date: 20251020
  Serious: Yes (Death)
  Sender: PFIZER
  Company Number: None

PATIENT
  Age: 50 Year
  Sex: Female

DRUGS (7)
  1. CYKLOKAPRON [Interacting]
     Active Substance: TRANEXAMIC ACID
     Indication: Heavy menstrual bleeding
     Dates: start: 202507
  2. ESTRADIOL\NORETHINDRONE ACETATE\RELUGOLIX [Interacting]
     Active Substance: ESTRADIOL\NORETHINDRONE ACETATE\RELUGOLIX
     Indication: Uterine leiomyoma
     Dosage: 1 TABLET IN THE MORNING
     Route: 048
     Dates: start: 20250718, end: 20250730
  3. ESTRADIOL\NORETHINDRONE ACETATE\RELUGOLIX [Interacting]
     Active Substance: ESTRADIOL\NORETHINDRONE ACETATE\RELUGOLIX
     Indication: Heavy menstrual bleeding
  4. ALENDRONIC ACID [Concomitant]
     Active Substance: ALENDRONIC ACID
  5. NEURONTIN [Concomitant]
     Active Substance: GABAPENTIN
  6. HYDROXOCOBALAMIN [Concomitant]
     Active Substance: HYDROXOCOBALAMIN
  7. ARCOXIA [Concomitant]
     Active Substance: ETORICOXIB

REACTIONS (2)
  - Pulmonary embolism [Fatal]
  - Drug interaction [Fatal]

NARRATIVE: CASE EVENT DATE: 20250729
